FAERS Safety Report 10041385 (Version 1)
Quarter: 2014Q1

REPORT INFORMATION
  Report Type: Spontaneous
  Country: US (occurrence: None)
  Receive Date: 20140326
  Receipt Date: 20140326
  Transmission Date: 20141002
  Serious: Yes (Hospitalization, Other)
  Sender: FDA-Public Use
  Company Number: None

PATIENT
  Age: 36 Year
  Sex: Female
  Weight: 92.08 kg

DRUGS (2)
  1. MALARONE [Suspect]
     Indication: MALARIA PROPHYLAXIS
     Dosage: 1 TABLET, QD, ORAL
     Route: 048
  2. DAILY PRENATAL VITAMINS [Concomitant]

REACTIONS (3)
  - Anxiety [None]
  - Dyspnoea [None]
  - Blood pressure increased [None]
